FAERS Safety Report 7688551-8 (Version None)
Quarter: 2011Q3

REPORT INFORMATION
  Report Type: 
  Country: None (occurrence: None)
  Receive Date: 20110817
  Receipt Date: 20110817
  Transmission Date: 20111222
  Serious: Yes (Life-Threatening)
  Sender: FDA-Public Use
  Company Number: None

PATIENT
  Age: 21 Year
  Sex: Male
  Weight: 81.646 kg

DRUGS (2)
  1. ZOFRAN [Suspect]
     Indication: NAUSEA
     Dosage: 4MG IM -L- DELTOID
     Route: 030
     Dates: start: 20110815, end: 20110815
  2. ZOFRAN [Suspect]
     Indication: VOMITING
     Dosage: 4MG IM -L- DELTOID
     Route: 030
     Dates: start: 20110815, end: 20110815

REACTIONS (1)
  - ANAPHYLACTIC SHOCK [None]
